FAERS Safety Report 20815462 (Version 3)
Quarter: 2025Q4

REPORT INFORMATION
  Report Type: Spontaneous
  Country: EU (occurrence: EU)
  Receive Date: 20220511
  Receipt Date: 20251029
  Transmission Date: 20260117
  Serious: Yes (Death, Life-Threatening, Other)
  Sender: INCYTE
  Company Number: EU-PFIZER INC-202200592299

PATIENT
  Age: 9 Year

DRUGS (16)
  1. RUXOLITINIB [Suspect]
     Active Substance: RUXOLITINIB
     Indication: Acute graft versus host disease
     Dosage: UNK (FROM DAY44-100)
     Route: 065
  2. RUXOLITINIB [Suspect]
     Active Substance: RUXOLITINIB
     Indication: Graft versus host disease
  3. CYCLOSPORINE [Suspect]
     Active Substance: CYCLOSPORINE
     Indication: Prophylaxis against graft versus host disease
     Dosage: UNK, PRETRANSPLANTATION DAY -1
     Route: 065
  4. BASILIXIMAB [Suspect]
     Active Substance: BASILIXIMAB
     Indication: Acute graft versus host disease
     Dosage: UNK (FROM DAY40-106)
     Route: 065
  5. BASILIXIMAB [Suspect]
     Active Substance: BASILIXIMAB
     Indication: Graft versus host disease
  6. ETANERCEPT [Suspect]
     Active Substance: ETANERCEPT
     Indication: Acute graft versus host disease
     Dosage: UNK (FROM DAY 34-106)
     Route: 065
  7. ETANERCEPT [Suspect]
     Active Substance: ETANERCEPT
     Indication: Graft versus host disease
  8. METHOTREXATE SODIUM [Suspect]
     Active Substance: METHOTREXATE SODIUM
     Indication: Prophylaxis against graft versus host disease
     Dosage: ON POST-TRANSPLANTATION DAYS +1, +3 AND +6
     Route: 065
  9. MYCOPHENOLATE MOFETIL [Suspect]
     Active Substance: MYCOPHENOLATE MOFETIL
     Indication: Prophylaxis against graft versus host disease
     Dosage: 40 MG/KG, BIW
     Route: 065
  10. MYCOPHENOLATE MOFETIL [Suspect]
     Active Substance: MYCOPHENOLATE MOFETIL
     Dosage: UNK, PRETRANSPLANTATION DAY -1 TO DAY +62
     Route: 065
  11. ANTI-THYMOCYTE GLOBULIN (RABBIT) NOS [Suspect]
     Active Substance: LAPINE T-LYMPHOCYTE IMMUNE GLOBULIN
     Indication: Immunosuppressant drug therapy
     Dosage: 45 MG/KG (AT A TOTAL DOSE OF 45 MG/KG BW)
     Route: 065
  12. ANTI-THYMOCYTE GLOBULIN (RABBIT) NOS [Suspect]
     Active Substance: LAPINE T-LYMPHOCYTE IMMUNE GLOBULIN
     Indication: Allogenic stem cell transplantation
  13. ETOPOSIDE [Suspect]
     Active Substance: ETOPOSIDE
     Indication: Allogenic stem cell transplantation
     Dosage: 60 MG/KG BW
     Route: 065
  14. ETOPOSIDE [Suspect]
     Active Substance: ETOPOSIDE
     Indication: Immunosuppressant drug therapy
  15. VEDOLIZUMAB [Suspect]
     Active Substance: VEDOLIZUMAB
     Indication: Graft versus host disease in skin
     Dosage: UNK, AT +88 DAYS POST TRANSPLANTATION, VEDOLIZUMAB WAS STARTED AND WAS ADMINISTERED TWICE (ON DAYS +88 AND+102)
     Route: 065
  16. VEDOLIZUMAB [Suspect]
     Active Substance: VEDOLIZUMAB
     Indication: Graft versus host disease in gastrointestinal tract

REACTIONS (10)
  - Burkitt^s lymphoma recurrent [Fatal]
  - Mucosal inflammation [Unknown]
  - Acute graft versus host disease in intestine [Unknown]
  - Acute graft versus host disease in skin [Unknown]
  - Graft versus host disease [Unknown]
  - Drug ineffective [Unknown]
  - Angiopathy [Unknown]
  - Posterior reversible encephalopathy syndrome [Unknown]
  - Pyrexia [Unknown]
  - Product use in unapproved indication [Unknown]
